FAERS Safety Report 25335468 (Version 1)
Quarter: 2025Q2

REPORT INFORMATION
  Report Type: Report from Study
  Country: US (occurrence: US)
  Receive Date: 20250520
  Receipt Date: 20250520
  Transmission Date: 20250716
  Serious: Yes (Other)
  Sender: ACADIA PHARMACEUTICALS
  Company Number: US-ACADIA PHARMACEUTICALS INC.-ACA-2025-PIM-005895

PATIENT
  Age: 83 Year
  Sex: Male

DRUGS (13)
  1. NUPLAZID [Suspect]
     Active Substance: PIMAVANSERIN TARTRATE
     Indication: Parkinson^s disease
     Dosage: 34 MILLIGRAM, QD
     Route: 048
     Dates: start: 20230718
  2. TIMOLOL MALEATE [Concomitant]
     Active Substance: TIMOLOL MALEATE
  3. LATANOPROST [Concomitant]
     Active Substance: LATANOPROST
  4. OXYBUTYNIN [Concomitant]
     Active Substance: OXYBUTYNIN
  5. FINASTERIDE [Concomitant]
     Active Substance: FINASTERIDE
  6. VITAMIN C [Concomitant]
     Active Substance: ASCORBIC ACID
  7. DULCOLAX STOOL SOFTENER [Concomitant]
     Active Substance: DOCUSATE SODIUM
  8. CARBIDOPA\LEVODOPA [Concomitant]
     Active Substance: CARBIDOPA\LEVODOPA
  9. RIVASTIGMINE [Concomitant]
     Active Substance: RIVASTIGMINE
  10. IBUPROFEN [Concomitant]
     Active Substance: IBUPROFEN
  11. BISACODYL [Concomitant]
     Active Substance: BISACODYL
  12. SENNA LEAF [Concomitant]
     Active Substance: SENNA LEAF
  13. MIRALAX [Concomitant]
     Active Substance: POLYETHYLENE GLYCOL 3350

REACTIONS (2)
  - Unresponsive to stimuli [Recovered/Resolved]
  - Urinary tract infection [Recovered/Resolved]

NARRATIVE: CASE EVENT DATE: 20250505
